FAERS Safety Report 8530842-2 (Version None)
Quarter: 2012Q3

REPORT INFORMATION
  Report Type: 
  Country: None (occurrence: None)
  Receive Date: 20120723
  Receipt Date: 20120709
  Transmission Date: 20120928
  Serious: Yes (Other)
  Sender: FDA-Public Use
  Company Number: NO-ROCHE-1088740

PATIENT

DRUGS (1)
  1. AVASTIN [Suspect]
     Indication: METASTATIC MALIGNANT MELANOMA
     Route: 042

REACTIONS (1)
  - ANAPHYLACTIC SHOCK [None]
